FAERS Safety Report 8812985 (Version 2)
Quarter: 2015Q3

REPORT INFORMATION
  Report Type: Report from Study
  Country: US (occurrence: US)
  Receive Date: 20120927
  Receipt Date: 20150731
  Transmission Date: 20151125
  Serious: Yes (Death)
  Sender: FDA-Public Use
  Company Number: US-ROCHE-1123575

PATIENT
  Sex: Female

DRUGS (10)
  1. ANZEMET [Concomitant]
     Active Substance: DOLASETRON MESYLATE
     Route: 042
  2. NAVELBINE [Concomitant]
     Active Substance: VINORELBINE TARTRATE
     Route: 042
  3. BENADRYL [Concomitant]
     Active Substance: DIPHENHYDRAMINE HYDROCHLORIDE
     Route: 042
  4. HERCEPTIN [Suspect]
     Active Substance: TRASTUZUMAB
     Dosage: MAINTENANCE  DOSE
     Route: 042
  5. TYLENOL [Concomitant]
     Active Substance: ACETAMINOPHEN
     Route: 048
  6. HERCEPTIN [Suspect]
     Active Substance: TRASTUZUMAB
     Indication: BREAST CANCER FEMALE
     Dosage: LOADING DOSE
     Route: 042
  7. HERCEPTIN [Suspect]
     Active Substance: TRASTUZUMAB
     Route: 065
  8. HERCEPTIN [Suspect]
     Active Substance: TRASTUZUMAB
     Route: 042
  9. HERCEPTIN [Suspect]
     Active Substance: TRASTUZUMAB
     Route: 042
  10. TYLENOL [Concomitant]
     Active Substance: ACETAMINOPHEN
     Route: 048

REACTIONS (8)
  - Chills [Unknown]
  - Nausea [Unknown]
  - Vomiting [Unknown]
  - Appetite disorder [Unknown]
  - Pyrexia [Unknown]
  - Abdominal pain upper [Unknown]
  - Death [Fatal]
  - Fatigue [Unknown]
